FAERS Safety Report 19804985 (Version 4)
Quarter: 2022Q2

REPORT INFORMATION
  Report Type: Report from Study
  Country: KR (occurrence: KR)
  Receive Date: 20210908
  Receipt Date: 20220610
  Transmission Date: 20220720
  Serious: Yes (Hospitalization)
  Sender: FDA-Public Use
  Company Number: KR-NOVARTISPH-NVSC2021KR203015

PATIENT
  Age: 81 Year
  Sex: Male

DRUGS (4)
  1. ALPELISIB [Suspect]
     Active Substance: ALPELISIB
     Indication: Gastric cancer
     Dosage: 300 MG, UNKNOWN
     Route: 048
     Dates: start: 20210825, end: 20210902
  2. PACLITAXEL [Suspect]
     Active Substance: PACLITAXEL
     Indication: Gastric cancer
     Dosage: UNK, QW
     Route: 042
     Dates: start: 20210825
  3. DEXTROSE [Concomitant]
     Active Substance: DEXTROSE
     Indication: Product used for unknown indication
     Dosage: SALINE 1 L BAG X 1 DAY
     Route: 065
     Dates: start: 20210901
  4. SODIUM CHLORIDE [Concomitant]
     Active Substance: SODIUM CHLORIDE
     Indication: Product used for unknown indication
     Dosage: 500 ML, 130 ML X1: OVER 20 MIN
     Route: 065
     Dates: start: 20210901, end: 20210909

REACTIONS (1)
  - Hyponatraemia [Recovered/Resolved]

NARRATIVE: CASE EVENT DATE: 20210903
